FAERS Safety Report 19050807 (Version 1)
Quarter: 2021Q1

REPORT INFORMATION
  Report Type: Spontaneous
  Country: NL (occurrence: NL)
  Receive Date: 20210324
  Receipt Date: 20210324
  Transmission Date: 20210420
  Serious: Yes (Other)
  Sender: FDA-Public Use
  Company Number: NL-AUROBINDO-AUR-APL-2021-011965

PATIENT
  Sex: Female
  Weight: 75 kg

DRUGS (1)
  1. VENLAFAXINE PROLONGED RELEASED CAPSULES,HARD 37.5M G [Suspect]
     Active Substance: VENLAFAXINE HYDROCHLORIDE
     Indication: PRODUCT USED FOR UNKNOWN INDICATION
     Dosage: 37.5 MILLIGRAM, ONCE A DAY,1X PER DAG
     Route: 065
     Dates: start: 20210309, end: 20210311

REACTIONS (6)
  - Dizziness [Recovering/Resolving]
  - Insomnia [Recovering/Resolving]
  - Decreased appetite [Recovering/Resolving]
  - Nausea [Recovering/Resolving]
  - Chills [Recovering/Resolving]
  - Syncope [Recovering/Resolving]
